FAERS Safety Report 10039778 (Version 2)
Quarter: 2014Q1

REPORT INFORMATION
  Report Type: Spontaneous
  Country: US (occurrence: US)
  Receive Date: 20140326
  Receipt Date: 20140326
  Transmission Date: 20141002
  Serious: Yes (Other)
  Sender: FDA-Public Use
  Company Number: US-JNJFOC-20140106063

PATIENT
  Sex: Male
  Weight: 90.72 kg

DRUGS (7)
  1. XARELTO [Suspect]
     Indication: CEREBROVASCULAR ACCIDENT PROPHYLAXIS
     Route: 048
     Dates: start: 20130125
  2. XARELTO [Suspect]
     Indication: ATRIAL FIBRILLATION
     Route: 048
     Dates: start: 20130125
  3. HYTRIN [Concomitant]
     Indication: PROSTATIC DISORDER
     Route: 048
  4. HYTRIN [Concomitant]
     Indication: PROSTATIC DISORDER
     Route: 048
     Dates: start: 20000101
  5. ATENOLOL [Concomitant]
     Indication: ATRIAL FIBRILLATION
     Route: 048
     Dates: start: 20130125
  6. DIGOXIN [Concomitant]
     Indication: ATRIAL FIBRILLATION
     Route: 048
     Dates: start: 20130326
  7. ATENOLOL [Concomitant]
     Indication: ATRIAL FIBRILLATION
     Route: 048

REACTIONS (6)
  - Neuropathy peripheral [Unknown]
  - Haemorrhage [Unknown]
  - Fatigue [Unknown]
  - Fall [Unknown]
  - Dental caries [Recovering/Resolving]
  - Inappropriate schedule of drug administration [Unknown]
